FAERS Safety Report 5749681-0 (Version None)
Quarter: 2008Q2

REPORT INFORMATION
  Report Type: 
  Country: None (occurrence: None)
  Receive Date: 20080521
  Receipt Date: 20080521
  Transmission Date: 20081010
  Serious: Yes (Life-Threatening)
  Sender: FDA-Public Use
  Company Number: None

PATIENT
  Age: 63 Year
  Sex: Female
  Weight: 70 kg

DRUGS (1)
  1. DACARBAZINE [Suspect]
     Dosage: 650 MG Q2 W PR
     Dates: start: 20080301

REACTIONS (1)
  - INFUSION RELATED REACTION [None]
